FAERS Safety Report 23613533 (Version 1)
Quarter: 2024Q1

REPORT INFORMATION
  Report Type: Spontaneous
  Country: AU (occurrence: AU)
  Receive Date: 20240308
  Receipt Date: 20240308
  Transmission Date: 20240410
  Serious: Yes (Hospitalization, Other)
  Sender: FDA-Public Use
  Company Number: AU-009507513-2403AUS001194

PATIENT
  Age: 71 Year
  Sex: Female

DRUGS (3)
  1. KEYTRUDA [Suspect]
     Active Substance: PEMBROLIZUMAB
     Indication: Triple negative breast cancer
  2. CARBOPLATIN [Concomitant]
     Active Substance: CARBOPLATIN
     Indication: Triple negative breast cancer
  3. TAXOL [Concomitant]
     Active Substance: PACLITAXEL
     Indication: Triple negative breast cancer

REACTIONS (9)
  - Neutropenia [Unknown]
  - Dyspnoea [Unknown]
  - Fatigue [Unknown]
  - Escherichia sepsis [Unknown]
  - Rash [Unknown]
  - Diverticulum [Unknown]
  - Diarrhoea [Unknown]
  - Blood thyroid stimulating hormone increased [Not Recovered/Not Resolved]
  - General physical health deterioration [Unknown]
